FAERS Safety Report 26167756 (Version 1)
Quarter: 2025Q4

REPORT INFORMATION
  Report Type: Spontaneous
  Country: CN (occurrence: CN)
  Receive Date: 20251217
  Receipt Date: 20251217
  Transmission Date: 20260117
  Serious: Yes (Hospitalization, Other)
  Sender: PHARMOBEDIENT CONSULTING, LLC
  Company Number: CN-Pharmobedient-000646

PATIENT
  Age: 53 Year
  Sex: Male

DRUGS (4)
  1. OXALIPLATIN [Interacting]
     Active Substance: OXALIPLATIN
     Indication: Rectal cancer
  2. AMLODIPINE BESYLATE [Interacting]
     Active Substance: AMLODIPINE BESYLATE
     Indication: Product used for unknown indication
     Dosage: 5 MG
     Route: 048
  3. FLUOROURACIL [Concomitant]
     Active Substance: FLUOROURACIL
     Indication: Rectal cancer
     Dosage: 0.6 G I.V. + 4.2G CONTINUOUS PUMPING FOR 46 HOURS
  4. LEUCOVORIN CALCIUM [Concomitant]
     Active Substance: LEUCOVORIN CALCIUM
     Indication: Rectal cancer

REACTIONS (3)
  - Brugada syndrome [Recovered/Resolved]
  - Drug interaction [Unknown]
  - Abdominal distension [Unknown]
